FAERS Safety Report 4486678-5 (Version None)
Quarter: 2004Q4

REPORT INFORMATION
  Report Type: 
  Country: None (occurrence: None)
  Receive Date: 20041021
  Receipt Date: 20041005
  Transmission Date: 20050328
  Serious: Yes (Hospitalization)
  Sender: FDA-Public Use
  Company Number: 8007416

PATIENT
  Age: 38 Year
  Sex: Female

DRUGS (11)
  1. KEPPRA [Suspect]
     Indication: EPILEPSY
     Dosage: 2500 MG/D PO
     Route: 048
     Dates: start: 20021001, end: 20030601
  2. KEPPRA [Suspect]
     Indication: EPILEPSY
     Dosage: 1750 MG/D PO
     Route: 048
     Dates: start: 20040201, end: 20040501
  3. KEPPRA [Suspect]
     Indication: EPILEPSY
     Dosage: 750 MG/D PO
     Route: 048
     Dates: start: 20040801
  4. KEPPRA [Suspect]
     Indication: EPILEPSY
     Dosage: 1250 MG/D PO
     Route: 048
  5. KEPPRA [Suspect]
     Indication: EPILEPSY
     Dosage: 1250 MG/D PO
     Route: 048
     Dates: start: 20040901, end: 20040901
  6. KEPPRA [Suspect]
     Indication: EPILEPSY
     Dosage: 1250 MG/D PO
     Route: 048
     Dates: start: 20040901
  7. KEPPRA [Suspect]
     Indication: EPILEPSY
     Dosage: 1250 MG/D PO
     Route: 048
     Dates: start: 20040901
  8. LAMOTRIGINE [Concomitant]
  9. VITAMIN B1 AND B 6 [Concomitant]
  10. FOLIC ACID [Concomitant]
  11. FERRUM ORAL ^LEK^ [Concomitant]

REACTIONS (13)
  - CONVULSION [None]
  - DISEASE RECURRENCE [None]
  - DRUG INEFFECTIVE [None]
  - GRAND MAL CONVULSION [None]
  - HEADACHE [None]
  - HICCUPS [None]
  - IRRITABILITY [None]
  - MIGRAINE [None]
  - MOOD ALTERED [None]
  - NASAL CONGESTION [None]
  - NASAL DRYNESS [None]
  - REACTION TO DRUG EXCIPIENT [None]
  - SNEEZING [None]
